FAERS Safety Report 6087910-7 (Version None)
Quarter: 2009Q1

REPORT INFORMATION
  Report Type: 
  Country: None (occurrence: None)
  Receive Date: 20090223
  Receipt Date: 20090216
  Transmission Date: 20090719
  Serious: Yes (Other)
  Sender: FDA-Public Use
  Company Number: IL-ROXANE LABORATORIES, INC.-2009-RO-00158RO

PATIENT
  Age: 51 Year
  Sex: Female
  Weight: 64 kg

DRUGS (13)
  1. MORPHINE [Suspect]
     Indication: SPINAL ANAESTHESIA
     Route: 037
  2. VALIUM [Suspect]
     Route: 048
  3. METOCLOPRAMIDE [Suspect]
     Route: 048
  4. PROPOFOL [Suspect]
     Indication: GENERAL ANAESTHESIA
     Route: 042
  5. PROPOFOL [Suspect]
     Indication: SEDATION
     Route: 042
  6. PROPOFOL [Suspect]
     Indication: DELIRIUM
  7. FENTANYL [Suspect]
     Indication: GENERAL ANAESTHESIA
     Route: 042
  8. VECURONIUM BROMIDE [Suspect]
     Indication: HYPOTONIA
  9. MYOSTIGMINE [Suspect]
     Indication: NEUROMUSCULAR BLOCKADE REVERSAL
     Route: 042
  10. ATROPINE [Suspect]
     Indication: NEUROMUSCULAR BLOCKADE REVERSAL
     Route: 042
  11. OXYGEN [Suspect]
     Indication: MECHANICAL VENTILATION
  12. ISOFLURANE [Suspect]
     Indication: GENERAL ANAESTHESIA
  13. ENALAPRIL [Suspect]
     Indication: ESSENTIAL HYPERTENSION

REACTIONS (1)
  - REVERSIBLE POSTERIOR LEUKOENCEPHALOPATHY SYNDROME [None]
